FAERS Safety Report 25213106 (Version 1)
Quarter: 2025Q2

REPORT INFORMATION
  Report Type: Spontaneous
  Country: US (occurrence: US)
  Receive Date: 20250418
  Receipt Date: 20250418
  Transmission Date: 20250717
  Serious: No
  Sender: BRISTOL-MYERS SQUIBB COMPANY
  Company Number: US-BRISTOL-MYERS SQUIBB COMPANY-2025-057579

PATIENT
  Age: 72 Year
  Sex: Female

DRUGS (1)
  1. REVLIMID [Suspect]
     Active Substance: LENALIDOMIDE
     Indication: Follicular lymphoma
     Dosage: DAILY X21 DAYS ON, 7 DAYS OFF
     Route: 048
     Dates: start: 20250327

REACTIONS (1)
  - Nausea [Recovering/Resolving]

NARRATIVE: CASE EVENT DATE: 20250401
